FAERS Safety Report 9995848 (Version 1)
Quarter: 2014Q1

REPORT INFORMATION
  Report Type: Spontaneous
  Country: US (occurrence: None)
  Receive Date: 20140310
  Receipt Date: 20140310
  Transmission Date: 20141002
  Serious: Yes (Other)
  Sender: FDA-Public Use
  Company Number: None

PATIENT
  Age: 46 Year
  Sex: Female
  Weight: 136.08 kg

DRUGS (1)
  1. LISINOPRIL 20 MG [Suspect]
     Indication: BLOOD PRESSURE
     Dosage: ONE ONCE DALY TAKEN BY MOUTH
     Route: 048

REACTIONS (3)
  - Lip swelling [None]
  - Swelling face [None]
  - Lip swelling [None]
